FAERS Safety Report 15588027 (Version 5)
Quarter: 2019Q1

REPORT INFORMATION
  Report Type: Report from Study
  Country: US (occurrence: US)
  Receive Date: 20181105
  Receipt Date: 20190208
  Transmission Date: 20190417
  Serious: Yes (Death, Hospitalization, Other)
  Sender: FDA-Public Use
  Company Number: US-ACTELION-A-NJ2018-167657

PATIENT
  Age: 71 Year
  Sex: Female
  Weight: 85.71 kg

DRUGS (6)
  1. VELETRI [Suspect]
     Active Substance: EPOPROSTENOL
     Indication: PULMONARY ARTERIAL HYPERTENSION
     Dosage: 115 NG/KG, PER MIN
     Route: 042
  2. VELETRI [Suspect]
     Active Substance: EPOPROSTENOL
     Dosage: 68 NG/KG, PER MIN
     Route: 042
  3. COUMADIN [Concomitant]
     Active Substance: WARFARIN SODIUM
  4. VELETRI [Suspect]
     Active Substance: EPOPROSTENOL
     Dosage: 93 NG/KG, PER MIN
     Route: 042
  5. VELETRI [Suspect]
     Active Substance: EPOPROSTENOL
     Dosage: 75 NG/KG, PER MIN
     Route: 042
  6. VELETRI [Suspect]
     Active Substance: EPOPROSTENOL
     Dosage: 91 NG/KG, PER MIN
     Route: 042

REACTIONS (35)
  - Respiratory arrest [Fatal]
  - Oedema peripheral [Unknown]
  - Tremor [Unknown]
  - Oedema [Unknown]
  - Facial paralysis [Fatal]
  - Diarrhoea [Unknown]
  - Dyspnoea exertional [Unknown]
  - Hypotension [Unknown]
  - Oxygen saturation decreased [Unknown]
  - Presyncope [Unknown]
  - Disease progression [Unknown]
  - Lung disorder [Fatal]
  - Infusion site extravasation [Unknown]
  - Facial pain [Not Recovered/Not Resolved]
  - Device occlusion [Recovered/Resolved]
  - Pain in jaw [Unknown]
  - Dyspnoea at rest [Unknown]
  - Pulmonary arterial hypertension [Unknown]
  - Ventricular extrasystoles [Unknown]
  - Palpitations [Unknown]
  - Feeling abnormal [Unknown]
  - Anaemia [Unknown]
  - Device breakage [Unknown]
  - Arthritis [Unknown]
  - Unresponsive to stimuli [Unknown]
  - Feeling cold [Unknown]
  - Chest discomfort [Unknown]
  - Headache [Unknown]
  - Fluid retention [Unknown]
  - Cerebrovascular accident [Fatal]
  - Cardiac disorder [Fatal]
  - Heart rate decreased [Unknown]
  - Dyspnoea [Unknown]
  - Chills [Unknown]
  - Fatigue [Unknown]

NARRATIVE: CASE EVENT DATE: 20180712
